FAERS Safety Report 7826097-4 (Version None)
Quarter: 2011Q4

REPORT INFORMATION
  Report Type: 
  Country: None (occurrence: None)
  Receive Date: 20111019
  Receipt Date: 20111018
  Transmission Date: 20120403
  Serious: No
  Sender: FDA-Public Use
  Company Number: US-B.I. PHARMACEUTICALS,INC./RIDGEFIELD-2011-BP-22060BP

PATIENT
  Sex: Female

DRUGS (10)
  1. CRESTOR [Concomitant]
     Indication: BLOOD CHOLESTEROL INCREASED
     Dosage: 20 MG
     Route: 048
  2. SYNTHROID [Concomitant]
     Indication: HYPOTHYROIDISM
  3. CRESTOR [Concomitant]
     Indication: CEREBROVASCULAR ACCIDENT
  4. SOTALOL HCL [Concomitant]
     Indication: CEREBROVASCULAR ACCIDENT
  5. SYNTHROID [Concomitant]
     Indication: THYROIDECTOMY
     Dosage: 88 MCG
     Route: 048
  6. ASPIRIN [Concomitant]
     Route: 048
  7. DIGOXIN [Concomitant]
     Indication: CARDIAC DISORDER
     Dosage: 0.25 MG
     Route: 048
  8. DIGOXIN [Concomitant]
     Indication: ATRIAL FIBRILLATION
     Dosage: 0.125 MG
     Route: 048
  9. PRADAXA [Suspect]
     Indication: ATRIAL FIBRILLATION
     Dosage: 300 MG
     Route: 048
     Dates: start: 20110909, end: 20110925
  10. SOTALOL HCL [Concomitant]
     Indication: CARDIAC DISORDER
     Dosage: 160 MG
     Route: 048

REACTIONS (5)
  - SLEEP DISORDER [None]
  - MUSCULOSKELETAL STIFFNESS [None]
  - HYPERSOMNIA [None]
  - NECK PAIN [None]
  - HYPERHIDROSIS [None]
